FAERS Safety Report 5390328-3 (Version None)
Quarter: 2007Q3

REPORT INFORMATION
  Report Type: 
  Country: None (occurrence: None)
  Receive Date: 20070718
  Receipt Date: 20070710
  Transmission Date: 20080115
  Serious: Yes (Hospitalization, Other)
  Sender: FDA-Public Use
  Company Number: BR-PFIZER INC-2006130526

PATIENT
  Sex: Male

DRUGS (7)
  1. ALDACTONE [Suspect]
     Route: 048
  2. LASIX [Suspect]
  3. PLAMET [Concomitant]
     Route: 065
  4. PRAVACHOL [Concomitant]
     Route: 065
     Dates: start: 20060701
  5. PANTOPRAZOLE SODIUM [Concomitant]
     Dates: start: 20060701
  6. CARVEDILOL [Concomitant]
     Dates: start: 20060701
  7. LACTULOSE [Concomitant]
     Dates: start: 20060701

REACTIONS (7)
  - ASTHENIA [None]
  - CONSTIPATION [None]
  - GAIT DISTURBANCE [None]
  - HYPERSOMNIA [None]
  - PANCREATITIS [None]
  - SHOCK [None]
  - URINARY TRACT INFECTION [None]
